FAERS Safety Report 10476703 (Version 4)
Quarter: 2018Q3

REPORT INFORMATION
  Report Type: Spontaneous
  Country: JP (occurrence: JP)
  Receive Date: 20140925
  Receipt Date: 20180720
  Transmission Date: 20181010
  Serious: Yes (Other)
  Sender: FDA-Public Use
  Company Number: PHHY2013JP162924

PATIENT
  Age: 62 Year
  Sex: Female

DRUGS (1)
  1. GLIVEC [Suspect]
     Active Substance: IMATINIB MESYLATE
     Indication: CHRONIC MYELOID LEUKAEMIA
     Dosage: 400 MG, QD
     Route: 048

REACTIONS (12)
  - Rash [Recovered/Resolved]
  - Anaemia [Recovered/Resolved]
  - Malaise [Unknown]
  - Blood creatine phosphokinase increased [Unknown]
  - Oedema [Recovered/Resolved]
  - Ascites [Recovered/Resolved]
  - Hepatic function abnormal [Recovered/Resolved]
  - Drug intolerance [Unknown]
  - Hypothyroidism [Unknown]
  - Blood bilirubin increased [Unknown]
  - Pericardial effusion [Recovered/Resolved]
  - Pleural effusion [Recovered/Resolved]
